FAERS Safety Report 21362358 (Version 1)
Quarter: 2022Q3

REPORT INFORMATION
  Report Type: Spontaneous
  Country: US (occurrence: US)
  Receive Date: 20220922
  Receipt Date: 20220922
  Transmission Date: 20221026
  Serious: Yes (Hospitalization)
  Sender: FDA-Public Use
  Company Number: US-STRIDES ARCOLAB LIMITED-2022SP009481

PATIENT
  Age: 5 Month
  Sex: Male

DRUGS (3)
  1. PREDNISOLONE [Suspect]
     Active Substance: PREDNISOLONE
     Indication: Infantile spasms
     Dosage: UNK HIGH DOSE
     Route: 065
  2. PYRIDOXINE [Suspect]
     Active Substance: PYRIDOXINE
     Indication: Infantile spasms
     Dosage: 100 MILLIGRAM
     Route: 042
  3. PYRIDOXINE [Suspect]
     Active Substance: PYRIDOXINE
     Dosage: 100 MILLIGRAM ADDITIONAL
     Route: 042

REACTIONS (1)
  - Drug ineffective for unapproved indication [Unknown]
